FAERS Safety Report 6616059-7 (Version None)
Quarter: 2010Q1

REPORT INFORMATION
  Report Type: 
  Country: None (occurrence: None)
  Receive Date: 20100226
  Receipt Date: 20100215
  Transmission Date: 20100710
  Serious: Yes (Other)
  Sender: FDA-Public Use
  Company Number: 1000011759

PATIENT
  Sex: Female
  Weight: 50 kg

DRUGS (2)
  1. ESCITALOPRAM [Suspect]
     Indication: STRESS
     Dosage: 20 MG (20 MG,1 IN 1 D), ORAL
     Route: 048
     Dates: start: 20090101, end: 20100101
  2. ESCITALOPRAM [Suspect]
     Indication: STRESS
     Dosage: 15 MG (15 MG,1 IN 1 D), ORAL
     Route: 048
     Dates: end: 20090101

REACTIONS (7)
  - BLOOD GLUCOSE DECREASED [None]
  - BRADYCARDIA [None]
  - CEREBRAL ISCHAEMIA [None]
  - CONVULSION [None]
  - DIZZINESS [None]
  - LOSS OF CONSCIOUSNESS [None]
  - OFF LABEL USE [None]
